FAERS Safety Report 24139986 (Version 1)
Quarter: 2024Q3

REPORT INFORMATION
  Report Type: Spontaneous
  Country: CA (occurrence: CA)
  Receive Date: 20240726
  Receipt Date: 20240726
  Transmission Date: 20241017
  Serious: Yes (Hospitalization)
  Sender: TAKEDA
  Company Number: CA-TAKEDA-2024TUS073230

PATIENT
  Age: 5 Year
  Sex: Male
  Weight: 16 kg

DRUGS (9)
  1. GAMMAGARD S/D [Suspect]
     Active Substance: HUMAN IMMUNOGLOBULIN G
     Indication: Kawasaki^s disease
     Dosage: 50 MILLILITER
     Route: 042
  2. GAMMAGARD S/D [Suspect]
     Active Substance: HUMAN IMMUNOGLOBULIN G
     Indication: Kawasaki^s disease
     Dosage: 50 MILLILITER
     Route: 042
  3. GAMMAGARD S/D [Suspect]
     Active Substance: HUMAN IMMUNOGLOBULIN G
     Dosage: 100 MILLILITER
     Route: 042
  4. GAMMAGARD S/D [Suspect]
     Active Substance: HUMAN IMMUNOGLOBULIN G
     Dosage: 100 MILLILITER
     Route: 042
  5. GAMMAGARD S/D [Suspect]
     Active Substance: HUMAN IMMUNOGLOBULIN G
     Dosage: 80 MILLILITER
     Route: 042
  6. GAMMAGARD S/D [Suspect]
     Active Substance: HUMAN IMMUNOGLOBULIN G
     Dosage: 80 MILLILITER
     Route: 042
  7. AMOXICILLIN [Concomitant]
     Active Substance: AMOXICILLIN
     Dosage: UNK
     Route: 065
  8. ASPIRIN [Concomitant]
     Active Substance: ASPIRIN
     Dosage: UNK
     Route: 065
  9. TYLENOL [Concomitant]
     Active Substance: ACETAMINOPHEN
     Dosage: UNK
     Route: 065

REACTIONS (20)
  - Acne [Recovering/Resolving]
  - Anaemia [Recovering/Resolving]
  - Blood bilirubin increased [Recovering/Resolving]
  - Blood lactate dehydrogenase increased [Recovering/Resolving]
  - Body temperature decreased [Recovering/Resolving]
  - Body temperature increased [Recovering/Resolving]
  - C-reactive protein decreased [Recovering/Resolving]
  - Chills [Recovering/Resolving]
  - Dizziness [Recovering/Resolving]
  - Haemolysis [Recovering/Resolving]
  - Headache [Recovering/Resolving]
  - Heart rate decreased [Recovering/Resolving]
  - Hyperhidrosis [Recovering/Resolving]
  - Kawasaki^s disease [Recovering/Resolving]
  - Neutrophil count increased [Recovering/Resolving]
  - Red blood cell spherocytes present [Recovering/Resolving]
  - Splenomegaly [Recovering/Resolving]
  - Transfusion reaction [Recovering/Resolving]
  - Use of accessory respiratory muscles [Recovering/Resolving]
  - White blood cell count increased [Recovering/Resolving]
